FAERS Safety Report 11389157 (Version 2)
Quarter: 2015Q3

REPORT INFORMATION
  Report Type: Spontaneous
  Country: US (occurrence: US)
  Receive Date: 20150817
  Receipt Date: 20150821
  Transmission Date: 20151125
  Serious: Yes (Hospitalization, Other)
  Sender: FDA-Public Use
  Company Number: US-009507513-1205USA04811

PATIENT
  Sex: Female
  Weight: 47.62 kg

DRUGS (3)
  1. ALENDRONATE SODIUM. [Suspect]
     Active Substance: ALENDRONATE SODIUM
     Indication: BONE DENSITY DECREASED
     Dosage: 70 MG, UNK
     Route: 048
     Dates: start: 20080611, end: 20100420
  2. FOSAMAX [Suspect]
     Active Substance: ALENDRONATE SODIUM
     Indication: BONE DENSITY DECREASED
     Dosage: UNK
     Route: 048
     Dates: start: 20001218
  3. FOSAMAX [Suspect]
     Active Substance: ALENDRONATE SODIUM
     Indication: OSTEOPENIA
     Dosage: 70 MG, UNK
     Route: 048
     Dates: start: 20050325, end: 20080408

REACTIONS (15)
  - Intervertebral disc degeneration [Unknown]
  - Acetabulum fracture [Unknown]
  - Haemorrhagic anaemia [Recovering/Resolving]
  - Migraine [Unknown]
  - Hyperlipidaemia [Not Recovered/Not Resolved]
  - Insomnia [Unknown]
  - Femur fracture [Unknown]
  - Fatigue [Recovering/Resolving]
  - Arthralgia [Unknown]
  - Hypothyroidism [Unknown]
  - Diverticulum [Unknown]
  - Blood pressure increased [Unknown]
  - Femur fracture [Unknown]
  - Rash [Unknown]
  - Femur fracture [Unknown]

NARRATIVE: CASE EVENT DATE: 20060707
